FAERS Safety Report 13273541 (Version 1)
Quarter: 2017Q1

REPORT INFORMATION
  Report Type: Spontaneous
  Country: AE (occurrence: AE)
  Receive Date: 20170227
  Receipt Date: 20170227
  Transmission Date: 20170428
  Serious: Yes (Other)
  Sender: FDA-Public Use
  Company Number: AE-PFIZER INC-2017080614

PATIENT
  Age: 68 Year
  Sex: Male

DRUGS (1)
  1. SUNITINIB MALATE. [Suspect]
     Active Substance: SUNITINIB MALATE
     Indication: METASTATIC RENAL CELL CARCINOMA
     Dosage: 37.5 MG, CYCLIC (4 WEEKS ON 2 WEEKS OFF)

REACTIONS (7)
  - Loss of consciousness [Unknown]
  - Abdominal pain [Unknown]
  - Dyspepsia [Unknown]
  - Blood creatinine increased [Unknown]
  - Frequent bowel movements [Unknown]
  - Hypothyroidism [Unknown]
  - Malignant hypertension [Unknown]

NARRATIVE: CASE EVENT DATE: 2011
